FAERS Safety Report 25079382 (Version 2)
Quarter: 2025Q1

REPORT INFORMATION
  Report Type: Spontaneous
  Country: US (occurrence: US)
  Receive Date: 20250314
  Receipt Date: 20250317
  Transmission Date: 20250409
  Serious: Yes (Life-Threatening, Hospitalization, Other)
  Sender: PFIZER
  Company Number: US-TAKEDA-2025TUS024625

PATIENT
  Age: 67 Year
  Sex: Female

DRUGS (9)
  1. PANTOPRAZOLE [Suspect]
     Active Substance: PANTOPRAZOLE
  2. LEVETIRACETAM [Suspect]
     Active Substance: LEVETIRACETAM
  3. LEVOTHYROXINE SODIUM [Suspect]
     Active Substance: LEVOTHYROXINE SODIUM
  4. METOPROLOL TARTRATE [Suspect]
     Active Substance: METOPROLOL TARTRATE
  5. AMLODIPINE [Suspect]
     Active Substance: AMLODIPINE BESYLATE
  6. MIRTAZAPINE [Suspect]
     Active Substance: MIRTAZAPINE
  7. QUETIAPINE [Suspect]
     Active Substance: QUETIAPINE
  8. QUETIAPINE [Suspect]
     Active Substance: QUETIAPINE
  9. MELATONIN [Suspect]
     Active Substance: MELATONIN

REACTIONS (7)
  - Intentional overdose [Unknown]
  - Suicide attempt [Unknown]
  - Hypotension [Recovering/Resolving]
  - Hypoxia [Recovering/Resolving]
  - Respiratory failure [Recovering/Resolving]
  - Metabolic acidosis [Recovering/Resolving]
  - Mental status changes [Recovering/Resolving]
